FAERS Safety Report 8198863-X (Version None)
Quarter: 2012Q1

REPORT INFORMATION
  Report Type: 
  Country: None (occurrence: None)
  Receive Date: 20120309
  Receipt Date: 20120301
  Transmission Date: 20120608
  Serious: Yes (Hospitalization)
  Sender: FDA-Public Use
  Company Number: US-B.I. PHARMACEUTICALS,INC./RIDGEFIELD-2012-BP-03968PF

PATIENT
  Sex: Female

DRUGS (11)
  1. NICOTROL [Concomitant]
  2. CHOLECALCIFEROL [Concomitant]
     Dosage: 5000 U
  3. PHENERGAN [Concomitant]
     Dosage: 25 MG
  4. ALBUTEROL INHALER [Concomitant]
     Dosage: 90 MCG
  5. SINEQUAN [Concomitant]
     Dosage: 75 MG
  6. SPIRIVA [Suspect]
     Indication: CHRONIC OBSTRUCTIVE PULMONARY DISEASE
     Dosage: 18 MCG
     Route: 055
     Dates: start: 20070101
  7. NEXIUM [Concomitant]
     Dosage: 40 MG
  8. NICOTROL [Concomitant]
  9. ACCURETIC [Concomitant]
  10. DALIRESP [Concomitant]
     Dosage: 500 MCG
  11. ADVAIR HFA [Concomitant]

REACTIONS (15)
  - HYPOKALAEMIA [None]
  - NAUSEA [None]
  - NECK PAIN [None]
  - HYPOAESTHESIA [None]
  - DEPRESSION [None]
  - PANCREATITIS CHRONIC [None]
  - INSOMNIA [None]
  - BACK PAIN [None]
  - NEUROPATHY PERIPHERAL [None]
  - INCREASED UPPER AIRWAY SECRETION [None]
  - INTERVERTEBRAL DISC PROTRUSION [None]
  - GASTROOESOPHAGEAL REFLUX DISEASE [None]
  - COUGH [None]
  - CHOKING [None]
  - PAIN IN EXTREMITY [None]
